FAERS Safety Report 22203060 (Version 1)
Quarter: 2023Q2

REPORT INFORMATION
  Report Type: Report from Study
  Country: US (occurrence: None)
  Receive Date: 20230412
  Receipt Date: 20230412
  Transmission Date: 20230722
  Serious: Yes (Hospitalization, Other)
  Sender: FDA-Public Use
  Company Number: 2023A080719

PATIENT

DRUGS (6)
  1. TAGRISSO [Suspect]
     Active Substance: OSIMERTINIB
     Indication: Non-small cell lung cancer metastatic
     Route: 048
     Dates: start: 20220625
  2. FLUOROURACIL [Concomitant]
     Active Substance: FLUOROURACIL
  3. VALSARTAN [Concomitant]
     Active Substance: VALSARTAN
  4. ZESTRIL [Concomitant]
     Active Substance: LISINOPRIL
  5. VITAMINS [Concomitant]
     Active Substance: VITAMINS
  6. MAGNESIUM PHOSPHORUS [Concomitant]

REACTIONS (10)
  - Neoplasm malignant [Unknown]
  - Joint swelling [Unknown]
  - Precancerous condition [Unknown]
  - Pruritus [Unknown]
  - Urine output decreased [Unknown]
  - Gastrointestinal disorder [Unknown]
  - Ophthalmic migraine [Unknown]
  - Blood magnesium decreased [Unknown]
  - Muscle spasms [Unknown]
  - Rash pruritic [Unknown]
